FAERS Safety Report 14098966 (Version 1)
Quarter: 2017Q4

REPORT INFORMATION
  Report Type: Report from Study
  Country: BE (occurrence: BE)
  Receive Date: 20171017
  Receipt Date: 20171017
  Transmission Date: 20180321
  Serious: Yes (Other)
  Sender: FDA-Public Use
  Company Number: BE-BAYER-2017-054759

PATIENT
  Sex: Male

DRUGS (7)
  1. HYGROTON [Concomitant]
     Active Substance: CHLORTHALIDONE
     Dosage: 50 MG, QD
  2. STIVARGA [Suspect]
     Active Substance: REGORAFENIB
     Indication: COLORECTAL CANCER STAGE IV
     Dosage: DAILY DOSE 160 MG
     Dates: start: 20170301
  3. STIVARGA [Suspect]
     Active Substance: REGORAFENIB
     Indication: METASTASES TO LUNG
     Dosage: DAILY DOSE 120 MG
     Dates: start: 20170329, end: 20170810
  4. HYGROTON [Concomitant]
     Active Substance: CHLORTHALIDONE
     Dosage: 50 MG, QD
  5. VALSARTAN. [Concomitant]
     Active Substance: VALSARTAN
     Dosage: 80 MG, BID
  6. AMLODIPINE [Concomitant]
     Active Substance: AMLODIPINE BESYLATE
     Dosage: 5 MG, UNK
  7. PANTOPRAZOLE [Concomitant]
     Active Substance: PANTOPRAZOLE
     Dosage: 40 MG, UNK

REACTIONS (17)
  - Headache [None]
  - Weight decreased [None]
  - Constipation [None]
  - Palmar-plantar erythrodysaesthesia syndrome [None]
  - Muscle spasms [Unknown]
  - Weight decreased [None]
  - Dehydration [Not Recovered/Not Resolved]
  - Dysphonia [None]
  - Hypertension [None]
  - Diarrhoea [Recovered/Resolved]
  - Dysphonia [None]
  - Weight decreased [None]
  - Decreased appetite [Not Recovered/Not Resolved]
  - Palmar-plantar erythrodysaesthesia syndrome [Not Recovered/Not Resolved]
  - Diarrhoea [None]
  - Hypertension [Not Recovered/Not Resolved]
  - Decreased appetite [None]

NARRATIVE: CASE EVENT DATE: 201703
